FAERS Safety Report 9449062 (Version 3)
Quarter: 2013Q3

REPORT INFORMATION
  Report Type: Spontaneous
  Country: DE (occurrence: None)
  Receive Date: 20130806
  Receipt Date: 20130815
  Transmission Date: 20140515
  Serious: Yes (Death)
  Sender: FDA-Public Use
  Company Number: TPG2013A00828

PATIENT
  Age: 54 Year
  Sex: Male

DRUGS (2)
  1. EDARBI [Suspect]
     Indication: ESSENTIAL HYPERTENSION
     Route: 048
     Dates: start: 20120629, end: 20130505
  2. SIMVASTATIN (SIMVASTATIN) [Concomitant]

REACTIONS (3)
  - Cardiac death [None]
  - Sudden death [None]
  - Myocardial infarction [None]
